FAERS Safety Report 6551196-7 (Version None)
Quarter: 2010Q1

REPORT INFORMATION
  Report Type: 
  Country: None (occurrence: None)
  Receive Date: 20100121
  Receipt Date: 20100107
  Transmission Date: 20100710
  Serious: Yes (Other)
  Sender: FDA-Public Use
  Company Number: 2008AL001000

PATIENT
  Age: 50 Year
  Sex: Female

DRUGS (11)
  1. BETAMETHASONE VALERATE [Suspect]
     Indication: POSTOPERATIVE CARE
     Dosage: OTH
     Route: 050
     Dates: start: 20070530, end: 20070530
  2. PHENYLEPHRINE HYDROCHLORIDE NASAL SOLUTION USP, 1% (ALPHARMA) (PHENYLE [Suspect]
     Indication: CATARACT OPERATION
     Dosage: OPH
     Route: 047
     Dates: start: 20070530, end: 20070530
  3. LIDOCAINE HYDROCHLORIDE 2% [Suspect]
     Indication: ANAESTHESIA
     Dosage: OPH
     Route: 047
     Dates: start: 20070530, end: 20070530
  4. NEOMYCIN [Concomitant]
  5. OCUFEN [Concomitant]
  6. HYALURONIC ACID [Concomitant]
  7. PROXYMETACAINE [Concomitant]
  8. POVIDONE IODINE [Concomitant]
  9. EPINEPHRINE [Concomitant]
  10. CYCLOPENTOLATE HCL [Concomitant]
  11. VANCOMYCIN [Concomitant]

REACTIONS (1)
  - TOXIC ANTERIOR SEGMENT SYNDROME [None]
